FAERS Safety Report 14759220 (Version 1)
Quarter: 2018Q2

REPORT INFORMATION
  Report Type: Spontaneous
  Country: BR (occurrence: BR)
  Receive Date: 20180413
  Receipt Date: 20180413
  Transmission Date: 20180711
  Serious: Yes (Other)
  Sender: FDA-Public Use
  Company Number: BR-ALEXION PHARMACEUTICALS INC.-A201804213

PATIENT
  Age: 37 Year
  Sex: Female

DRUGS (2)
  1. SOLIRIS [Suspect]
     Active Substance: ECULIZUMAB
     Indication: PAROXYSMAL NOCTURNAL HAEMOGLOBINURIA
     Dosage: 600 MG, UNK
     Route: 042
     Dates: start: 20150908, end: 20150929
  2. SOLIRIS [Suspect]
     Active Substance: ECULIZUMAB
     Dosage: 900 MG, Q2W
     Route: 042
     Dates: start: 20151006

REACTIONS (14)
  - Gait inability [Unknown]
  - Yellow skin [Unknown]
  - Asthenia [Unknown]
  - Haemolysis [Unknown]
  - Haemoglobin decreased [Unknown]
  - Feeding disorder [Not Recovered/Not Resolved]
  - Pallor [Unknown]
  - Dyspnoea [Unknown]
  - Anaemia [Unknown]
  - Faeces discoloured [Unknown]
  - Chromaturia [Unknown]
  - Vomiting [Unknown]
  - Anxiety [Unknown]
  - Pain in extremity [Unknown]

NARRATIVE: CASE EVENT DATE: 20180329
